FAERS Safety Report 4869724-6 (Version None)
Quarter: 2005Q4

REPORT INFORMATION
  Report Type: 
  Country: None (occurrence: None)
  Receive Date: 20051223
  Receipt Date: 20051212
  Transmission Date: 20060501
  Serious: Yes (Hospitalization)
  Sender: FDA-Public Use
  Company Number: MEDI-0003939

PATIENT
  Age: 3 Month
  Sex: Male

DRUGS (2)
  1. SYNAGIS [Suspect]
     Indication: ANTIVIRAL PROPHYLAXIS
     Dosage: UNKNOWN, 1 IN 30 D, INTRAMUSCULAR
     Route: 030
     Dates: start: 20051103, end: 20051130
  2. SYNAGIS [Suspect]
     Indication: ANTIVIRAL PROPHYLAXIS
     Dosage: UNKNOWN, 1 IN 30 D, INTRAMUSCULAR
     Route: 030
     Dates: start: 20051103

REACTIONS (3)
  - GENERAL PHYSICAL HEALTH DETERIORATION [None]
  - MYOCARDITIS [None]
  - VENTRICULAR DYSFUNCTION [None]
